FAERS Safety Report 14284611 (Version 2)
Quarter: 2018Q1

REPORT INFORMATION
  Report Type: Spontaneous
  Country: US (occurrence: US)
  Receive Date: 20171214
  Receipt Date: 20180108
  Transmission Date: 20180509
  Serious: No
  Sender: FDA-Public Use
  Company Number: US-LEO PHARMA-306050

PATIENT
  Sex: Female

DRUGS (1)
  1. PICATO [Suspect]
     Active Substance: INGENOL MEBUTATE
     Indication: ACTINIC KERATOSIS
     Route: 061
     Dates: start: 20171201, end: 20171203

REACTIONS (3)
  - Application site scab [Recovered/Resolved]
  - Application site dryness [Not Recovered/Not Resolved]
  - Application site erythema [Recovering/Resolving]
